FAERS Safety Report 4850375-4 (Version None)
Quarter: 2005Q4

REPORT INFORMATION
  Report Type: 
  Country: None (occurrence: None)
  Receive Date: 20051123
  Receipt Date: 20051030
  Transmission Date: 20060501
  Serious: No
  Sender: FDA-Public Use
  Company Number: 218070

PATIENT
  Age: 59 Year
  Sex: Female
  Weight: 68 kg

DRUGS (1)
  1. RAPTIVA [Suspect]
     Indication: PSORIASIS
     Dosage: 68 MG, 1/WEEK, SUBCUTANEOUS
     Route: 058

REACTIONS (2)
  - ARTHRITIS [None]
  - MUSCLE TIGHTNESS [None]
